FAERS Safety Report 17659443 (Version 1)
Quarter: 2020Q2

REPORT INFORMATION
  Report Type: Spontaneous
  Country: US (occurrence: US)
  Receive Date: 20200413
  Receipt Date: 20200413
  Transmission Date: 20200713
  Serious: No
  Sender: FDA-Public Use
  Company Number: US-BION-008554

PATIENT
  Age: 87 Year
  Sex: Female

DRUGS (2)
  1. ALEVE [Suspect]
     Active Substance: NAPROXEN SODIUM
     Indication: COSTOCHONDRITIS
     Dosage: ONE IN THE MORNING AND ONE IN THE EVENING
     Route: 048
  2. CALENDULA OFFICINALIS [Concomitant]
     Active Substance: HOMEOPATHICS

REACTIONS (3)
  - Erythema [Not Recovered/Not Resolved]
  - Product use in unapproved indication [Not Recovered/Not Resolved]
  - Incorrect product administration duration [Not Recovered/Not Resolved]
